FAERS Safety Report 4788244-0 (Version None)
Quarter: 2005Q4

REPORT INFORMATION
  Report Type: 
  Country: None (occurrence: None)
  Receive Date: 20051003
  Receipt Date: 20050919
  Transmission Date: 20060501
  Serious: Yes (Hospitalization, Disabling, Other)
  Sender: FDA-Public Use
  Company Number: 2005129763

PATIENT
  Age: 49 Year
  Sex: Female
  Weight: 99.7913 kg

DRUGS (8)
  1. NEURONTIN [Suspect]
     Indication: PAIN
     Dosage: 2400 MG (600 MG, 4 IN 1 D)
     Dates: start: 19960101
  2. GABAPENTIN [Suspect]
     Indication: PAIN
     Dosage: 2400 MG (600 MG, 4 IN 1 D)
     Dates: start: 20050101
  3. AMITRIPTYLINE HCL [Concomitant]
  4. LANTUS [Concomitant]
  5. RENAGEL [Concomitant]
  6. FUROSEMIDE [Concomitant]
  7. ARANESP [Concomitant]
  8. HUMALOG [Concomitant]

REACTIONS (19)
  - ACCIDENT [None]
  - BILE DUCT OBSTRUCTION [None]
  - CHOLELITHIASIS [None]
  - CRANIAL NERVE DISORDER [None]
  - DIPLOPIA [None]
  - DRUG INEFFECTIVE [None]
  - EYE PAIN [None]
  - HYPOAESTHESIA [None]
  - IMPAIRED HEALING [None]
  - INFLAMMATION [None]
  - LEG AMPUTATION [None]
  - NERVOUS SYSTEM DISORDER [None]
  - PAIN IN EXTREMITY [None]
  - PHANTOM PAIN [None]
  - SKIN CHAPPED [None]
  - SKIN ULCER [None]
  - THERMAL BURN [None]
  - TOE AMPUTATION [None]
  - VISION BLURRED [None]
